FAERS Safety Report 10241718 (Version 1)
Quarter: 2014Q2

REPORT INFORMATION
  Report Type: Report from Study
  Country: US (occurrence: US)
  Receive Date: 20140617
  Receipt Date: 20140617
  Transmission Date: 20141212
  Serious: Yes (Hospitalization)
  Sender: FDA-Public Use
  Company Number: PHEH2014US012099

PATIENT
  Sex: Female
  Weight: 61.68 kg

DRUGS (1)
  1. GILENYA [Suspect]
     Indication: MULTIPLE SCLEROSIS
     Dosage: 0.5 MG, QD

REACTIONS (6)
  - Visual acuity reduced [Unknown]
  - Vitreous floaters [Unknown]
  - Vestibular disorder [Unknown]
  - Balance disorder [Unknown]
  - Vertigo [Unknown]
  - Fatigue [Unknown]
